FAERS Safety Report 21519139 (Version 1)
Quarter: 2022Q4

REPORT INFORMATION
  Report Type: Spontaneous
  Country: US (occurrence: US)
  Receive Date: 20221028
  Receipt Date: 20221028
  Transmission Date: 20230113
  Serious: No
  Sender: FDA-Public Use
  Company Number: ALC2022US004188

PATIENT
  Sex: Male

DRUGS (2)
  1. INVELTYS [Suspect]
     Active Substance: LOTEPREDNOL ETABONATE
     Indication: Product used for unknown indication
     Dosage: UNK
     Route: 065
  2. MULTIPLE UNSPECIFIED PRODUCTS [Concomitant]
     Indication: Product used for unknown indication
     Route: 065

REACTIONS (2)
  - Product dispensing issue [Not Recovered/Not Resolved]
  - Product quality issue [Not Recovered/Not Resolved]
